FAERS Safety Report 13546920 (Version 1)
Quarter: 2017Q2

REPORT INFORMATION
  Report Type: Spontaneous
  Country: FR (occurrence: FR)
  Receive Date: 20170515
  Receipt Date: 20170515
  Transmission Date: 20170830
  Serious: Yes (Hospitalization)
  Sender: FDA-Public Use
  Company Number: FR-PFIZER INC-2017204685

PATIENT
  Age: 74 Year
  Sex: Female

DRUGS (8)
  1. FLUOROURACILE ACCORD [Concomitant]
     Active Substance: FLUOROURACIL
     Indication: PANCREATIC CARCINOMA
     Dosage: 650 MG, WITHIN 10 MINUTES
     Route: 042
     Dates: end: 20170403
  2. ONDANSETRON [Concomitant]
     Active Substance: ONDANSETRON
     Indication: PROPHYLAXIS
     Dosage: 8 MG, CYCLIC
     Route: 042
     Dates: end: 20170403
  3. METHYLPREDNISOLONE. [Concomitant]
     Active Substance: METHYLPREDNISOLONE
     Indication: PROPHYLAXIS
     Dosage: 40 MG, CYCLIC
     Route: 042
     Dates: end: 20170403
  4. IRINOTECAN HOSPIRA [Concomitant]
     Active Substance: IRINOTECAN
     Indication: PANCREATIC CARCINOMA METASTATIC
     Dosage: 280 MG, WITHIN 1H30
     Route: 042
     Dates: end: 20170403
  5. CALCIUM FOLINATE [Concomitant]
     Active Substance: LEUCOVORIN CALCIUM
     Indication: PROPHYLAXIS
     Dosage: 640 MG, CYCLIC
     Route: 042
     Dates: end: 20170403
  6. FLUOROURACILE ACCORD [Concomitant]
     Active Substance: FLUOROURACIL
     Dosage: 3850 MG, WITHIN 46 HOURS
     Dates: end: 20170403
  7. ATROPINE. [Concomitant]
     Active Substance: ATROPINE
     Indication: PROPHYLAXIS
     Dosage: 0.25 MG, CYCLIC
     Route: 058
     Dates: end: 20170403
  8. OXALIPLATIN HOSPIRA [Suspect]
     Active Substance: OXALIPLATIN
     Indication: PANCREATIC CARCINOMA METASTATIC
     Dosage: 110 MG, WITHIN 2 HOURS
     Route: 042
     Dates: end: 20170403

REACTIONS (1)
  - Muscle spasms [Recovered/Resolved]

NARRATIVE: CASE EVENT DATE: 20170320
